FAERS Safety Report 11885777 (Version 1)
Quarter: 2016Q1

REPORT INFORMATION
  Report Type: Spontaneous
  Country: US (occurrence: US)
  Receive Date: 20160104
  Receipt Date: 20160104
  Transmission Date: 20160526
  Serious: Yes (Other)
  Sender: FDA-Public Use
  Company Number: US-JNJFOC-20160100335

PATIENT
  Sex: Female
  Weight: 72.58 kg

DRUGS (2)
  1. MOBIC [Concomitant]
     Active Substance: MELOXICAM
     Indication: ARTHRITIS
     Route: 048
  2. REMICADE [Suspect]
     Active Substance: INFLIXIMAB
     Indication: PRODUCT USED FOR UNKNOWN INDICATION
     Dosage: 4 INFUSIONS
     Route: 042
     Dates: start: 2008, end: 2009

REACTIONS (3)
  - Blister [Recovered/Resolved]
  - Skin exfoliation [Recovered/Resolved]
  - Urticaria [Recovered/Resolved]
